FAERS Safety Report 6492958-4 (Version None)
Quarter: 2009Q4

REPORT INFORMATION
  Report Type: 
  Country: None (occurrence: None)
  Receive Date: 20091211
  Receipt Date: 20091211
  Transmission Date: 20100525
  Serious: Yes (Other)
  Sender: FDA-Public Use
  Company Number: None

PATIENT
  Age: 55 Year
  Sex: Female
  Weight: 58.9676 kg

DRUGS (2)
  1. AMBIEN [Suspect]
     Indication: FIBROMYALGIA
     Dosage: 10 MG NIGHTLY PO
     Route: 048
     Dates: start: 20050301, end: 20091210
  2. AMBIEN [Suspect]
     Indication: SLEEP DISORDER
     Dosage: 10 MG NIGHTLY PO
     Route: 048
     Dates: start: 20050301, end: 20091210

REACTIONS (2)
  - MEMORY IMPAIRMENT [None]
  - SLEEP-RELATED EATING DISORDER [None]
